FAERS Safety Report 8361177-9 (Version None)
Quarter: 2012Q1

REPORT INFORMATION
  Report Type: 
  Country: None (occurrence: None)
  Receive Date: 20120323
  Receipt Date: 20110425
  Transmission Date: 20120608
  Serious: Yes (Other)
  Sender: FDA-Public Use
  Company Number: 163-21880-11033275

PATIENT
  Age: 65 Year
  Sex: Male

DRUGS (3)
  1. COMPAZINE (PROCHLORPERAZINE EDISYLATE)(UNKNOWN) [Concomitant]
  2. REVLIMID [Suspect]
     Indication: 5Q MINUS SYNDROME
     Dosage: 10 MG, QDAY 28 DAYS X 21 DAYS, PO,  5 MG, QDAY 28 DAYS X 21 DAYS, PO
     Route: 048
     Dates: start: 20110314
  3. REVLIMID [Suspect]
     Indication: 5Q MINUS SYNDROME
     Dosage: 10 MG, QDAY 28 DAYS X 21 DAYS, PO,  5 MG, QDAY 28 DAYS X 21 DAYS, PO
     Route: 048
     Dates: start: 20110401, end: 20110412

REACTIONS (6)
  - IRRITABILITY [None]
  - DYSPNOEA [None]
  - RASH ERYTHEMATOUS [None]
  - INSOMNIA [None]
  - DECREASED APPETITE [None]
  - FATIGUE [None]
